FAERS Safety Report 21566548 (Version 1)
Quarter: 2022Q4

REPORT INFORMATION
  Report Type: Spontaneous
  Country: US (occurrence: US)
  Receive Date: 20221108
  Receipt Date: 20221108
  Transmission Date: 20230113
  Serious: Yes (Other)
  Sender: FDA-Public Use
  Company Number: US-BAYER-2022A152112

PATIENT
  Age: 68 Year
  Sex: Male

DRUGS (1)
  1. KERENDIA [Suspect]
     Active Substance: FINERENONE
     Indication: Renal disorder
     Dates: start: 202207

REACTIONS (3)
  - Hyperkalaemia [Recovering/Resolving]
  - Cardiac flutter [Recovered/Resolved]
  - Arrhythmia [Recovered/Resolved]
